FAERS Safety Report 23335512 (Version 2)
Quarter: 2023Q4

REPORT INFORMATION
  Report Type: Other
  Country: IN (occurrence: None)
  Receive Date: 20231225
  Receipt Date: 20231229
  Transmission Date: 20240110
  Serious: Yes (Death, Hospitalization)
  Sender: FDA-Public Use
  Company Number: IN-ROCHE-3478499

PATIENT
  Age: 72 Year
  Sex: Male

DRUGS (1)
  1. TECENTRIQ [Suspect]
     Active Substance: ATEZOLIZUMAB
     Indication: Hepatocellular carcinoma
     Route: 041

REACTIONS (2)
  - Lower respiratory tract infection [Unknown]
  - Death [Fatal]

NARRATIVE: CASE EVENT DATE: 20231215
